FAERS Safety Report 16409933 (Version 1)
Quarter: 2019Q3

REPORT INFORMATION
  Report Type: Spontaneous
  Country: US (occurrence: US)
  Receive Date: 20190607
  Receipt Date: 20190607
  Transmission Date: 20191004
  Serious: No
  Sender: FDA-Public Use
  Company Number: None

PATIENT
  Age: 69 Year
  Sex: Female
  Weight: 69.75 kg

DRUGS (14)
  1. COMBIGAN 0.2%-0.5% EYE DROPS [Concomitant]
  2. VITAMIN C [Concomitant]
     Active Substance: ASCORBIC ACID
  3. NOVOLOG SLIDING SCALE [Concomitant]
  4. LANTUS 18 UNITS [Concomitant]
  5. BIT E CALCIUM [Concomitant]
  6. ELIQUIS [Suspect]
     Active Substance: APIXABAN
  7. RHOPRESSA 0.02% DROPS [Concomitant]
  8. COQ10 [Concomitant]
     Active Substance: UBIDECARENONE
  9. 81MG ASPURIN [Concomitant]
  10. XARELTO [Suspect]
     Active Substance: RIVAROXABAN
     Indication: ANTICOAGULANT THERAPY
     Dosage: ?          QUANTITY:30 TABLET(S);?THERAPY ONGOING: Y?
     Route: 048
     Dates: start: 20190404, end: 20190423
  11. PLAVIX [Concomitant]
     Active Substance: CLOPIDOGREL BISULFATE
  12. SYNTHROID 88MG [Concomitant]
  13. CRESTO 5 MG [Concomitant]
  14. B12 1000ML [Concomitant]

REACTIONS (2)
  - Blister [None]
  - Urticaria [None]

NARRATIVE: CASE EVENT DATE: 20190406
